FAERS Safety Report 14804548 (Version 1)
Quarter: 2018Q2

REPORT INFORMATION
  Report Type: Spontaneous
  Country: FR (occurrence: FR)
  Receive Date: 20180425
  Receipt Date: 20180425
  Transmission Date: 20180711
  Serious: Yes (Hospitalization)
  Sender: FDA-Public Use
  Company Number: FR-MERCK KGAA-2046444

PATIENT
  Age: 79 Year
  Sex: Female

DRUGS (1)
  1. NOVOTHYROX [Suspect]
     Active Substance: LEVOTHYROXINE SODIUM
     Indication: AUTOIMMUNE THYROIDITIS
     Dates: start: 2017

REACTIONS (31)
  - Sciatica [None]
  - Tremor [Recovering/Resolving]
  - Crying [None]
  - Dyspnoea exertional [None]
  - Amnesia [None]
  - General physical health deterioration [Recovering/Resolving]
  - Posture abnormal [None]
  - Palpitations [None]
  - Muscular weakness [Recovering/Resolving]
  - Alopecia [None]
  - Aggression [None]
  - Psychiatric symptom [None]
  - Decreased interest [None]
  - Dysgraphia [None]
  - Hypoaesthesia [None]
  - Loss of personal independence in daily activities [None]
  - Fatigue [None]
  - Depression [None]
  - Apathy [None]
  - Feeling abnormal [None]
  - Asthenia [None]
  - Pain in extremity [None]
  - Gait disturbance [None]
  - Burning sensation [None]
  - Sleep disorder [None]
  - Feeling drunk [None]
  - Arthralgia [None]
  - Impaired driving ability [None]
  - Social avoidant behaviour [None]
  - Headache [None]
  - Feeling hot [Recovering/Resolving]

NARRATIVE: CASE EVENT DATE: 2017
